FAERS Safety Report 8163904-2 (Version None)
Quarter: 2012Q1

REPORT INFORMATION
  Report Type: 
  Country: None (occurrence: None)
  Receive Date: 20120224
  Receipt Date: 20120216
  Transmission Date: 20120608
  Serious: Yes (Other)
  Sender: FDA-Public Use
  Company Number: IN-MPIJNJ-2012-01109

PATIENT

DRUGS (5)
  1. METHYLPREDNISOLONE [Suspect]
     Indication: IMMUNOSUPPRESSION
     Dosage: 125 MG, CYCLIC
  2. VELCADE [Suspect]
     Indication: IMMUNOSUPPRESSION
     Dosage: 1.3 MG/M2, CYCLIC
     Route: 042
  3. CYCLOPHOSPHAMIDE [Suspect]
     Indication: IMMUNOSUPPRESSION
     Dosage: 20 MG/KG, CYCLIC
     Route: 042
  4. RITUXIMAB [Suspect]
     Indication: IMMUNOSUPPRESSION
  5. ANTI-THYMOCYTE GLOBULIN RABBIT NOS [Suspect]
     Indication: IMMUNOSUPPRESSION
     Dosage: 1.5 MG/KG, CYCLIC
     Route: 042

REACTIONS (1)
  - TRANSPLANT REJECTION [None]
